FAERS Safety Report 9105367 (Version 2)
Quarter: 2013Q3

REPORT INFORMATION
  Report Type: Spontaneous
  Country: US (occurrence: US)
  Receive Date: 20130220
  Receipt Date: 20130718
  Transmission Date: 20140515
  Serious: Yes (Other)
  Sender: FDA-Public Use
  Company Number: CHPA2012US021067

PATIENT
  Age: 59 Year
  Sex: Female

DRUGS (9)
  1. EXCEDRIN MIGRAINE [Suspect]
     Indication: HEADACHE
     Dosage: 0.5 DF, PRN
     Route: 048
     Dates: start: 1992
  2. EXCEDRIN EXTRA STRENGTH [Suspect]
     Indication: HEADACHE
     Dosage: 0.5 DF, PRN
     Route: 048
  3. EXCEDRIN TENSION HEADACHE [Suspect]
     Indication: HEADACHE
     Dosage: 0.5 DF, PRN
     Route: 048
  4. ANTIHYPERTENSIVES [Concomitant]
     Indication: HEADACHE
     Dosage: UNK, UNK
     Dates: start: 201110
  5. IMITREX//SUMATRIPTAN [Concomitant]
  6. NODOZ [Concomitant]
     Indication: HEADACHE
  7. IBUPROFEN [Concomitant]
  8. DRAMAMINE [Concomitant]
     Indication: HEADACHE
  9. ANTIHISTAMINES [Concomitant]

REACTIONS (6)
  - Neuralgia [Recovered/Resolved]
  - Diarrhoea [Recovered/Resolved]
  - Abdominal pain upper [Recovered/Resolved]
  - Euphoric mood [Recovered/Resolved]
  - Gastric disorder [Recovered/Resolved]
  - Vomiting [Recovered/Resolved]
